FAERS Safety Report 7437475-X (Version None)
Quarter: 2011Q2

REPORT INFORMATION
  Report Type: 
  Country: None (occurrence: None)
  Receive Date: 20110426
  Receipt Date: 20110414
  Transmission Date: 20111010
  Serious: Yes (Hospitalization)
  Sender: FDA-Public Use
  Company Number: PHHY2011FR31839

PATIENT
  Sex: Female

DRUGS (8)
  1. TEGRETOL [Interacting]
     Dosage: 300 MG, BID
     Dates: start: 20100308, end: 20100716
  2. TEGRETOL [Interacting]
     Dosage: UNK UKN, UNK
     Dates: start: 20100716, end: 20101030
  3. SERESTA [Concomitant]
     Dosage: 25 MG, QD
     Dates: start: 20090518, end: 20100901
  4. PAROXETINE HCL [Interacting]
     Dosage: 0.5 DF, QD
     Dates: start: 20090507
  5. PAROXETINE HCL [Interacting]
     Dosage: 1 DF, QD
     Dates: start: 20090518, end: 20101001
  6. RIVOTRIL [Concomitant]
     Dosage: 0.5 DF, QD
     Dates: start: 20090507
  7. TEGRETOL [Suspect]
     Dosage: 200 MG, BID
     Dates: start: 20090507
  8. LAMICTAL [Concomitant]
     Dosage: 250 MG, QD
     Dates: start: 20050101

REACTIONS (6)
  - BACK PAIN [None]
  - PAIN IN JAW [None]
  - MALAISE [None]
  - DRUG INTERACTION [None]
  - ANXIETY [None]
  - VISUAL IMPAIRMENT [None]
